FAERS Safety Report 7497841-3 (Version None)
Quarter: 2011Q2

REPORT INFORMATION
  Report Type: 
  Country: None (occurrence: None)
  Receive Date: 20110524
  Receipt Date: 20110517
  Transmission Date: 20111010
  Serious: Yes (Other)
  Sender: FDA-Public Use
  Company Number: US-BAYER-200825909NA

PATIENT
  Age: 58 Year
  Sex: Female
  Weight: 63.864 kg

DRUGS (23)
  1. PROHANCE [Suspect]
     Indication: NUCLEAR MAGNETIC RESONANCE IMAGING
  2. XANAX [Concomitant]
  3. VOLTAREN [Concomitant]
  4. EFFEXOR [Concomitant]
  5. TENORMIN [Concomitant]
  6. ZINC [Concomitant]
     Route: 048
  7. PREMARIN [Concomitant]
  8. REMERON [Concomitant]
  9. TRILAFON [Concomitant]
  10. WELLBUTRIN [Concomitant]
  11. MAGNEVIST [Suspect]
     Indication: NUCLEAR MAGNETIC RESONANCE IMAGING
  12. SYNTHROID [Concomitant]
  13. LEXAPRO [Concomitant]
  14. OMNISCAN [Suspect]
     Indication: NUCLEAR MAGNETIC RESONANCE IMAGING
  15. OPTIMARK [Suspect]
     Indication: NUCLEAR MAGNETIC RESONANCE IMAGING
  16. TRICOR [Concomitant]
  17. CALCIUM WITH VITAMIN D [Concomitant]
     Route: 048
  18. MULTIHANCE [Suspect]
     Indication: NUCLEAR MAGNETIC RESONANCE IMAGING
  19. CLIMARA [Concomitant]
  20. AMBIEN [Concomitant]
  21. CRESTOR [Concomitant]
  22. LORTAB [Concomitant]
  23. LYRICA [Concomitant]

REACTIONS (13)
  - CONNECTIVE TISSUE DISORDER [None]
  - SCAR [None]
  - INJURY [None]
  - NEPHROGENIC SYSTEMIC FIBROSIS [None]
  - FIBROSIS [None]
  - PAIN [None]
  - ANXIETY [None]
  - GENERAL PHYSICAL HEALTH DETERIORATION [None]
  - MOBILITY DECREASED [None]
  - MUSCLE CONTRACTURE [None]
  - JOINT CONTRACTURE [None]
  - EMOTIONAL DISTRESS [None]
  - SKIN FIBROSIS [None]
